FAERS Safety Report 11693216 (Version 1)
Quarter: 2015Q4

REPORT INFORMATION
  Report Type: Spontaneous
  Country: US (occurrence: None)
  Receive Date: 20151102
  Receipt Date: 20151102
  Transmission Date: 20160304
  Serious: No
  Sender: FDA-Public Use
  Company Number: None

PATIENT
  Age: 46 Year
  Sex: Male
  Weight: 84.82 kg

DRUGS (8)
  1. FLONASE [Concomitant]
     Active Substance: FLUTICASONE PROPIONATE
  2. ALBUTEROL. [Concomitant]
     Active Substance: ALBUTEROL
  3. ADVAIR HFA [Concomitant]
     Active Substance: FLUTICASONE PROPIONATE\SALMETEROL XINAFOATE
  4. VITAMIN B12 [Concomitant]
     Active Substance: CYANOCOBALAMIN
  5. PREDNISONE. [Suspect]
     Active Substance: PREDNISONE
     Indication: OXYGEN SATURATION DECREASED
     Dosage: 10MGX4, FOUR TIMES DAILY, TAKEN BY MOUTH
     Route: 048
     Dates: start: 20151029, end: 20151029
  6. FISH OIL [Concomitant]
     Active Substance: FISH OIL
  7. PREDNISONE. [Suspect]
     Active Substance: PREDNISONE
     Indication: ASTHMA
     Dosage: 10MGX4, FOUR TIMES DAILY, TAKEN BY MOUTH
     Route: 048
     Dates: start: 20151029, end: 20151029
  8. VITAMIN D [Concomitant]
     Active Substance: CHOLECALCIFEROL

REACTIONS (5)
  - Ear discomfort [None]
  - Heart rate increased [None]
  - Eye pain [None]
  - Eye swelling [None]
  - Feeling hot [None]

NARRATIVE: CASE EVENT DATE: 20151029
